FAERS Safety Report 9057837 (Version 1)
Quarter: 2013Q1

REPORT INFORMATION
  Report Type: Spontaneous
  Country: US (occurrence: None)
  Receive Date: 20130204
  Receipt Date: 20130204
  Transmission Date: 20140127
  Serious: Yes (Hospitalization)
  Sender: FDA-Public Use
  Company Number: None

PATIENT
  Sex: Female
  Weight: 79.6 kg

DRUGS (9)
  1. ZOLEDRONIC ACID [Suspect]
     Indication: METASTASES TO BONE
     Dosage: 4 MG EVERY 7-10 WEEKS IV
     Dates: start: 20080212, end: 20111208
  2. FEMARA [Concomitant]
  3. AROMASIN [Concomitant]
  4. EVISTA [Concomitant]
  5. SIMVASTATIN [Concomitant]
  6. ATORVASTATIN [Concomitant]
  7. LEVOTHYROXINE [Concomitant]
  8. ALEVE [Concomitant]
  9. ASPIRIN [Concomitant]

REACTIONS (2)
  - Femur fracture [None]
  - Fall [None]
